FAERS Safety Report 21531307 (Version 1)
Quarter: 2022Q4

REPORT INFORMATION
  Report Type: Spontaneous
  Country: US (occurrence: None)
  Receive Date: 20221028
  Receipt Date: 20221028
  Transmission Date: 20230113
  Serious: No
  Sender: FDA-Public Use
  Company Number: None

PATIENT
  Age: 77 Year
  Sex: Female

DRUGS (14)
  1. AMBRISENTAN [Suspect]
     Active Substance: AMBRISENTAN
     Dosage: 5 MG TABLET DAILY ORAL?
     Route: 048
     Dates: start: 20210608
  2. MYCOPHENOLATE [Concomitant]
  3. VITAMIN D3 [Concomitant]
     Active Substance: CHOLECALCIFEROL
  4. PREDNISONE [Concomitant]
     Active Substance: PREDNISONE
  5. PRAMIPEXOLE [Concomitant]
     Active Substance: PRAMIPEXOLE
  6. ALLOPURINOL [Concomitant]
     Active Substance: ALLOPURINOL
  7. FUROSEMIDE [Concomitant]
     Active Substance: FUROSEMIDE
  8. ATORVASTATIN [Concomitant]
     Active Substance: ATORVASTATIN
  9. WARFARIN [Concomitant]
     Active Substance: WARFARIN
  10. FLONASE [Concomitant]
     Active Substance: FLUTICASONE PROPIONATE
  11. SYMBICORT [Concomitant]
     Active Substance: BUDESONIDE\FORMOTEROL FUMARATE DIHYDRATE
  12. SPRINOLACTONE [Concomitant]
  13. FLECAINIDE [Concomitant]
     Active Substance: FLECAINIDE
  14. VENTAVIS [Concomitant]
     Active Substance: ILOPROST

REACTIONS (1)
  - Osteoporosis [None]
